FAERS Safety Report 10216676 (Version 1)
Quarter: 2014Q2

REPORT INFORMATION
  Report Type: Report from Study
  Country: US (occurrence: US)
  Receive Date: 20140604
  Receipt Date: 20140604
  Transmission Date: 20141212
  Serious: Yes (Hospitalization)
  Sender: FDA-Public Use
  Company Number: US-ACTELION-A-NJ2014-099556

PATIENT
  Age: 69 Year
  Sex: Female

DRUGS (3)
  1. MACITENTAN [Suspect]
     Indication: PULMONARY ARTERIAL HYPERTENSION
     Dosage: 10 MG, UNK
     Route: 048
     Dates: start: 20140404
  2. REVATIO [Concomitant]
  3. WARFARIN [Concomitant]

REACTIONS (3)
  - Intestinal ischaemia [Unknown]
  - Abdominal pain [Unknown]
  - Gastrointestinal surgery [Unknown]
